FAERS Safety Report 15424593 (Version 1)
Quarter: 2018Q3

REPORT INFORMATION
  Report Type: Spontaneous
  Country: TW (occurrence: TW)
  Receive Date: 20180925
  Receipt Date: 20180925
  Transmission Date: 20181010
  Serious: Yes (Hospitalization, Other)
  Sender: FDA-Public Use
  Company Number: TW-MACLEODS PHARMACEUTICALS US LTD-MAC2017004591

PATIENT

DRUGS (2)
  1. ARIPIPRAZOLE  10 MG [Suspect]
     Active Substance: ARIPIPRAZOLE
     Indication: BIPOLAR I DISORDER
     Dosage: 10 MG, QD
     Route: 065
  2. VALPORIC ACID [Suspect]
     Active Substance: VALPROIC ACID
     Indication: BIPOLAR I DISORDER
     Dosage: 1500 MG, QD
     Route: 065

REACTIONS (4)
  - Hyperammonaemia [Recovered/Resolved]
  - Hyponatraemia [Recovered/Resolved]
  - Drug ineffective [Recovered/Resolved]
  - Drug interaction [Unknown]
